FAERS Safety Report 8057345-6 (Version None)
Quarter: 2012Q1

REPORT INFORMATION
  Report Type: 
  Country: None (occurrence: None)
  Receive Date: 20120119
  Receipt Date: 20120117
  Transmission Date: 20120608
  Serious: Yes (Other)
  Sender: FDA-Public Use
  Company Number: US-ABBOTT-11P-163-0855339-00

PATIENT
  Sex: Male
  Weight: 64.468 kg

DRUGS (4)
  1. PRILOSEC [Concomitant]
     Indication: PRODUCT USED FOR UNKNOWN INDICATION
     Dosage: OTC, AS NEEDED
  2. HUMIRA [Suspect]
     Dates: start: 20101001
  3. HUMIRA [Suspect]
     Indication: CROHN'S DISEASE
     Dates: start: 20070101, end: 20080101
  4. IRON [Concomitant]
     Indication: PRODUCT USED FOR UNKNOWN INDICATION

REACTIONS (1)
  - DIARRHOEA [None]
